FAERS Safety Report 6405417-1 (Version None)
Quarter: 2009Q4

REPORT INFORMATION
  Report Type: 
  Country: None (occurrence: None)
  Receive Date: 20091016
  Receipt Date: 20091016
  Transmission Date: 20100525
  Serious: Yes (Other)
  Sender: FDA-Public Use
  Company Number: None

PATIENT

DRUGS (1)
  1. RISPERDAL [Suspect]
     Indication: MENTAL DISORDER
     Dosage: 25MG RISPERDAL EVERY 14 DYS INJECTIONS BUTTOCKS INJECTION
     Dates: start: 20090401, end: 20090901

REACTIONS (14)
  - ABDOMINAL PAIN [None]
  - BACK PAIN [None]
  - CHEST PAIN [None]
  - COUGH [None]
  - DYSPNOEA [None]
  - GROIN PAIN [None]
  - HEADACHE [None]
  - MALAISE [None]
  - MOVEMENT DISORDER [None]
  - MUSCLE CONTRACTIONS INVOLUNTARY [None]
  - PRECANCEROUS CELLS PRESENT [None]
  - PYREXIA [None]
  - SMEAR CERVIX ABNORMAL [None]
  - VISUAL FIELD DEFECT [None]
